FAERS Safety Report 6185920-2 (Version None)
Quarter: 2009Q2

REPORT INFORMATION
  Report Type: 
  Country: None (occurrence: None)
  Receive Date: 20090507
  Receipt Date: 20090427
  Transmission Date: 20091009
  Serious: Yes (Hospitalization)
  Sender: FDA-Public Use
  Company Number: DAV-AE-MTX-09-027

PATIENT
  Age: 16 Year
  Sex: Male

DRUGS (11)
  1. METHOTREXATE [Suspect]
     Indication: ACUTE LYMPHOCYTIC LEUKAEMIA
     Dosage: 12 MG/ INTRATHECAL
     Route: 037
  2. PREDNISONE [Concomitant]
  3. VINCRISTINE [Concomitant]
  4. DAUNORUBICIN HCL [Concomitant]
  5. CYCLOPHOSPHAMIDE [Concomitant]
  6. POLYTHYLENE GLYCOL G-ASPARAGINASE [Concomitant]
  7. CYTARABINE [Concomitant]
  8. THIOGUANINE [Concomitant]
  9. HYDROCORTISONE [Concomitant]
  10. LEUCOVORIN CALCIUM [Concomitant]
  11. AMINOPHYLLINE [Concomitant]

REACTIONS (5)
  - EYELID PTOSIS [None]
  - FACIAL PARESIS [None]
  - HEMIPARESIS [None]
  - LEUKOENCEPHALOPATHY [None]
  - NEUROTOXICITY [None]
